FAERS Safety Report 20553955 (Version 1)
Quarter: 2022Q1

REPORT INFORMATION
  Report Type: Spontaneous
  Country: None (occurrence: FR)
  Receive Date: 20220304
  Receipt Date: 20220304
  Transmission Date: 20220423
  Serious: Yes (Other)
  Sender: FDA-Public Use
  Company Number: FR-B.Braun Medical Inc.-2126455

PATIENT
  Age: 85 Year
  Sex: Female

DRUGS (12)
  1. CEFAZOLIN [Suspect]
     Active Substance: CEFAZOLIN
  2. OXYCODONE HYDROCHLORIDE [Concomitant]
     Active Substance: OXYCODONE HYDROCHLORIDE
  3. VENOFER [Concomitant]
     Active Substance: IRON SUCROSE
  4. ROPIVACAINE HYDROCHLORIDE [Concomitant]
     Active Substance: ROPIVACAINE HYDROCHLORIDE
  5. NEFOPAM [Concomitant]
     Active Substance: NEFOPAM
  6. LOVENOX [Concomitant]
     Active Substance: ENOXAPARIN SODIUM
  7. EPHEDRINE HYDROCHLORIDE [Concomitant]
     Active Substance: EPHEDRINE HYDROCHLORIDE
  8. HYDROXYZINE HYDROCHLORIDE [Concomitant]
     Active Substance: HYDROXYZINE HYDROCHLORIDE
  9. SUFENTANIL [Concomitant]
     Active Substance: SUFENTANIL
  10. Ketamine renaudin, [Concomitant]
  11. PROPOFOL LIPURO [Concomitant]
     Active Substance: PROPOFOL
  12. NIMBEX [Concomitant]
     Active Substance: CISATRACURIUM BESYLATE

REACTIONS (1)
  - Mixed liver injury [Recovering/Resolving]
